FAERS Safety Report 12664190 (Version 3)
Quarter: 2016Q4

REPORT INFORMATION
  Report Type: Spontaneous
  Country: US (occurrence: US)
  Receive Date: 20160818
  Receipt Date: 20161010
  Transmission Date: 20170207
  Serious: Yes (Other)
  Sender: FDA-Public Use
  Company Number: US-GLAXOSMITHKLINE-US2016GSK114023

PATIENT
  Age: 71 Year
  Sex: Female

DRUGS (1)
  1. TANZEUM [Suspect]
     Active Substance: ALBIGLUTIDE
     Indication: TYPE 2 DIABETES MELLITUS
     Dosage: 30 MG, WE
     Route: 042
     Dates: start: 20160728

REACTIONS (9)
  - Decreased appetite [Unknown]
  - Back pain [Not Recovered/Not Resolved]
  - Dysgeusia [Unknown]
  - Accidental exposure to product [Unknown]
  - Renal pain [Unknown]
  - Underdose [Unknown]
  - Diabetes mellitus inadequate control [Unknown]
  - Device use error [Unknown]
  - Device leakage [Unknown]

NARRATIVE: CASE EVENT DATE: 20160804
